FAERS Safety Report 4960967-X (Version None)
Quarter: 2006Q2

REPORT INFORMATION
  Report Type: 
  Country: None (occurrence: None)
  Receive Date: 20060403
  Receipt Date: 20060210
  Transmission Date: 20061013
  Serious: Yes (Life-Threatening, Hospitalization)
  Sender: FDA-Public Use
  Company Number: PT-SANOFI-SYNTHELABO-A01200601049

PATIENT
  Sex: Female
  Weight: 60 kg

DRUGS (1)
  1. STILNOX [Suspect]
     Indication: INSOMNIA
     Dosage: 10 MG
     Route: 048
     Dates: end: 20050915

REACTIONS (1)
  - LOSS OF CONSCIOUSNESS [None]
